FAERS Safety Report 21682362 (Version 2)
Quarter: 2024Q2

REPORT INFORMATION
  Report Type: Other
  Country: JP (occurrence: JP)
  Receive Date: 20221205
  Receipt Date: 20240510
  Transmission Date: 20240716
  Serious: Yes (Hospitalization, Other)
  Sender: FDA-Public Use
  Company Number: JP-CHUGAI-2022047718AA

PATIENT
  Age: 75 Year

DRUGS (2)
  1. TECENTRIQ [Suspect]
     Active Substance: ATEZOLIZUMAB
     Indication: Hepatocellular carcinoma
     Dosage: 1200 MILLIGRAM
     Route: 065
     Dates: start: 20220922, end: 20220922
  2. AVASTIN [Suspect]
     Active Substance: BEVACIZUMAB
     Indication: Hepatocellular carcinoma
     Dosage: 700 MILLIGRAM
     Route: 065
     Dates: start: 20220922, end: 20220922

REACTIONS (8)
  - Cytopenia [Recovered/Resolved]
  - Encephalitis [Recovered/Resolved]
  - Meningitis [Recovered/Resolved]
  - Guillain-Barre syndrome [Recovering/Resolving]
  - Cardiac failure [Recovered/Resolved]
  - Inappropriate antidiuretic hormone secretion [Recovering/Resolving]
  - Pyrexia [Recovered/Resolved]
  - Liver disorder [Recovered/Resolved]

NARRATIVE: CASE EVENT DATE: 20220923
